FAERS Safety Report 7660469-6 (Version None)
Quarter: 2011Q3

REPORT INFORMATION
  Report Type: 
  Country: None (occurrence: None)
  Receive Date: 20110805
  Receipt Date: 20110722
  Transmission Date: 20111222
  Serious: Yes (Other)
  Sender: FDA-Public Use
  Company Number: US-WATSON-2011-11627

PATIENT
  Age: 75 Year
  Sex: Female
  Weight: 52.6 kg

DRUGS (3)
  1. PRIMIDONE [Suspect]
     Indication: CONVULSION
     Dosage: 250 MG, BID
     Route: 048
     Dates: end: 20090101
  2. DILANTIN [Suspect]
     Indication: CONVULSION
     Dosage: 100 MG, BID
     Route: 048
     Dates: start: 19480101
  3. PHENOBARBITAL TAB [Suspect]
     Indication: CONVULSION
     Dosage: UNK
     Route: 065
     Dates: start: 19480101, end: 19580101

REACTIONS (2)
  - DRUG INEFFECTIVE [None]
  - CONVULSION [None]
